FAERS Safety Report 10313682 (Version 2)
Quarter: 2014Q4

REPORT INFORMATION
  Report Type: Spontaneous
  Country: US (occurrence: None)
  Receive Date: 20140716
  Receipt Date: 20141010
  Transmission Date: 20150528
  Serious: Yes (Other)
  Sender: FDA-Public Use
  Company Number: 2014-US-008481

PATIENT
  Age: 22 Year
  Sex: Male
  Weight: 58 kg

DRUGS (1)
  1. XYREM [Suspect]
     Active Substance: SODIUM OXYBATE
     Indication: NARCOLEPSY
     Route: 048
     Dates: start: 201406, end: 2014

REACTIONS (6)
  - Blood pressure decreased [None]
  - Headache [None]
  - Agitation [None]
  - Decreased appetite [None]
  - Joint stiffness [None]
  - Syncope [None]

NARRATIVE: CASE EVENT DATE: 201406
